FAERS Safety Report 15111638 (Version 4)
Quarter: 2018Q4

REPORT INFORMATION
  Report Type: Spontaneous
  Country: ES (occurrence: ES)
  Receive Date: 20180705
  Receipt Date: 20181207
  Transmission Date: 20190204
  Serious: Yes (Disabling, Other)
  Sender: FDA-Public Use
  Company Number: ES-PFIZER INC-2018272316

PATIENT
  Age: 65 Year
  Sex: Male

DRUGS (8)
  1. AMIODARONE HCL [Suspect]
     Active Substance: AMIODARONE HYDROCHLORIDE
     Indication: ARRHYTHMIA
     Dosage: 75 MG, 2X/DAY
     Route: 048
  2. SIMVASTATIN. [Interacting]
     Active Substance: SIMVASTATIN
     Indication: HYPERCHOLESTEROLAEMIA
     Dosage: 20 MG, 1X/DAY
     Route: 048
     Dates: start: 2016
  3. TICLOPIDINE [Concomitant]
     Active Substance: TICLOPIDINE
     Indication: MYOCARDIAL INFARCTION
  4. ACETYLSALICYLIC ACID [Concomitant]
     Active Substance: ASPIRIN
     Indication: INFARCTION
     Dosage: 100 DF, UNK (1 YEAR)
  5. BISOPROLOL [Concomitant]
     Active Substance: BISOPROLOL
     Indication: SINUS ARRHYTHMIA
     Dosage: 5 MG, UNK
     Route: 048
  6. TICLOPIDINE [Concomitant]
     Active Substance: TICLOPIDINE
     Indication: INFARCTION
     Dosage: 250 MG, UNK (1 YEAR)
  7. OMEPRAZOLE. [Concomitant]
     Active Substance: OMEPRAZOLE
     Indication: HYPERCHOLESTEROLAEMIA
     Dosage: 20 MG, UNK
  8. OMEPRAZOLE. [Concomitant]
     Active Substance: OMEPRAZOLE
     Indication: GASTROOESOPHAGEAL REFLUX DISEASE

REACTIONS (2)
  - Drug interaction [Recovered/Resolved]
  - Myalgia [Recovered/Resolved]

NARRATIVE: CASE EVENT DATE: 2017
